FAERS Safety Report 10050966 (Version 3)
Quarter: 2014Q3

REPORT INFORMATION
  Report Type: Spontaneous
  Country: JP (occurrence: JP)
  Receive Date: 20140401
  Receipt Date: 20140722
  Transmission Date: 20150326
  Serious: Yes (Other)
  Sender: FDA-Public Use
  Company Number: JP-GLAXOSMITHKLINE-B0980463A

PATIENT
  Age: 52 Year
  Sex: Female
  Weight: 37 kg

DRUGS (8)
  1. REGPARA [Concomitant]
     Active Substance: CINACALCET HYDROCHLORIDE
     Dosage: 25MG PER DAY
     Route: 048
  2. LYRICA [Suspect]
     Active Substance: PREGABALIN
     Route: 048
     Dates: start: 20140312
  3. BAYASPIRIN [Concomitant]
     Active Substance: ASPIRIN
     Indication: RENAL FAILURE CHRONIC
     Dosage: 100MG PER DAY
     Route: 048
  4. RENAGEL [Concomitant]
     Active Substance: SEVELAMER HYDROCHLORIDE
     Dosage: 1500MG THREE TIMES PER DAY
     Route: 048
  5. VALTREX [Suspect]
     Active Substance: VALACYCLOVIR HYDROCHLORIDE
     Indication: HERPES ZOSTER
     Dosage: 500MG PER DAY
     Route: 048
     Dates: start: 20140311, end: 20140311
  6. NITOROL R [Concomitant]
     Indication: RENAL FAILURE CHRONIC
     Dosage: 20MG TWICE PER DAY
     Route: 048
  7. PROMAC [Concomitant]
     Active Substance: NITROFURANTOIN
     Indication: RENAL FAILURE CHRONIC
     Dosage: 75MG TWICE PER DAY
     Route: 048
  8. DOMPERIDONE [Concomitant]
     Active Substance: DOMPERIDONE
     Route: 048
     Dates: start: 20140312

REACTIONS (3)
  - Coma [Recovered/Resolved]
  - Muscle spasms [Unknown]
  - Myoclonus [Recovered/Resolved]

NARRATIVE: CASE EVENT DATE: 20140311
